FAERS Safety Report 10029847 (Version 1)
Quarter: 2014Q1

REPORT INFORMATION
  Report Type: Spontaneous
  Country: US (occurrence: None)
  Receive Date: 20140320
  Receipt Date: 20140320
  Transmission Date: 20141002
  Serious: Yes (Other)
  Sender: FDA-Public Use
  Company Number: 2014SGN00204

PATIENT
  Sex: Female

DRUGS (1)
  1. ADCETRIS [Suspect]
     Indication: ANGIOIMMUNOBLASTIC T-CELL LYMPHOMA

REACTIONS (2)
  - Hepatic cancer [None]
  - Off label use [None]
